FAERS Safety Report 25094663 (Version 1)
Quarter: 2025Q1

REPORT INFORMATION
  Report Type: Spontaneous
  Country: US (occurrence: US)
  Receive Date: 20250319
  Receipt Date: 20250319
  Transmission Date: 20250409
  Serious: No
  Sender: STRIDES
  Company Number: US-STRIDES ARCOLAB LIMITED-2024SP009731

PATIENT
  Age: 34 Year
  Sex: Female

DRUGS (8)
  1. METRONIDAZOLE [Suspect]
     Active Substance: METRONIDAZOLE
     Indication: Trichomoniasis
     Route: 048
     Dates: start: 201905, end: 20190618
  2. METRONIDAZOLE [Suspect]
     Active Substance: METRONIDAZOLE
     Route: 048
     Dates: start: 201905, end: 201909
  3. METRONIDAZOLE [Suspect]
     Active Substance: METRONIDAZOLE
     Route: 048
     Dates: start: 20191223, end: 20200219
  4. TINIDAZOLE [Suspect]
     Active Substance: TINIDAZOLE
     Indication: Trichomoniasis
     Route: 048
     Dates: start: 20190903, end: 201909
  5. TINIDAZOLE [Suspect]
     Active Substance: TINIDAZOLE
     Route: 048
     Dates: start: 20190916, end: 2019
  6. TINIDAZOLE [Suspect]
     Active Substance: TINIDAZOLE
     Route: 048
     Dates: start: 20191214, end: 2019
  7. BORIC ACID [Concomitant]
     Active Substance: BORIC ACID
     Indication: Trichomoniasis
     Route: 067
     Dates: start: 201910, end: 2019
  8. BORIC ACID [Concomitant]
     Active Substance: BORIC ACID
     Route: 067
     Dates: start: 20191214, end: 2020

REACTIONS (3)
  - Paraesthesia [Unknown]
  - Hypoaesthesia [Unknown]
  - Pathogen resistance [Unknown]

NARRATIVE: CASE EVENT DATE: 20191201
